FAERS Safety Report 10413322 (Version 2)
Quarter: 2014Q3

REPORT INFORMATION
  Report Type: Spontaneous
  Country: US (occurrence: US)
  Receive Date: 20140827
  Receipt Date: 20140827
  Transmission Date: 20150326
  Serious: Yes (Death, Hospitalization)
  Sender: FDA-Public Use
  Company Number: US-GLAXOSMITHKLINE-A0696644A

PATIENT
  Sex: Male
  Weight: 90.9 kg

DRUGS (3)
  1. GLUCOTROL XL [Concomitant]
     Active Substance: GLIPIZIDE
     Dates: start: 20030315, end: 20031225
  2. AVANDIA [Suspect]
     Active Substance: ROSIGLITAZONE MALEATE
     Indication: TYPE 2 DIABETES MELLITUS
     Dosage: 8MG PER DAY
     Route: 048
     Dates: start: 200204, end: 200603
  3. GLUCOTROL [Concomitant]
     Active Substance: GLIPIZIDE
     Dates: start: 20031226, end: 20080108

REACTIONS (8)
  - Pleural effusion [Unknown]
  - Coronary artery disease [Unknown]
  - Death [Fatal]
  - Cardiogenic shock [Unknown]
  - Cerebrovascular accident [Unknown]
  - Myocardial infarction [Fatal]
  - Myocardial infarction [Unknown]
  - Cardiac failure congestive [Unknown]
